FAERS Safety Report 10022739 (Version 3)
Quarter: 2014Q1

REPORT INFORMATION
  Report Type: Spontaneous
  Country: US (occurrence: US)
  Receive Date: 20140319
  Receipt Date: 20140325
  Transmission Date: 20141002
  Serious: Yes (Hospitalization)
  Sender: FDA-Public Use
  Company Number: US-B.I. PHARMACEUTICALS,INC./RIDGEFIELD-2012-BP-11033BP

PATIENT
  Sex: Female
  Weight: 68 kg

DRUGS (6)
  1. PRADAXA [Suspect]
     Indication: PRODUCT USED FOR UNKNOWN INDICATION
     Route: 065
     Dates: start: 20111117, end: 201202
  2. FLECAINIDE ACETATE [Concomitant]
     Route: 065
  3. TOPROL [Concomitant]
     Route: 065
     Dates: start: 201109, end: 201302
  4. NASONEX [Concomitant]
     Route: 065
     Dates: start: 201004, end: 201206
  5. ASMANEX [Concomitant]
     Route: 065
     Dates: start: 201004, end: 201208
  6. XOPENEX [Concomitant]
     Route: 065

REACTIONS (1)
  - Haemothorax [Unknown]
